FAERS Safety Report 4936435-8 (Version None)
Quarter: 2006Q1

REPORT INFORMATION
  Report Type: 
  Country: None (occurrence: None)
  Receive Date: 20060302
  Receipt Date: 20060208
  Transmission Date: 20060701
  Serious: Yes (Hospitalization)
  Sender: FDA-Public Use
  Company Number: US200602002491

PATIENT
  Age: 21 Year
  Sex: Female

DRUGS (2)
  1. SYMBYAX [Suspect]
     Dosage: D/F
     Dates: start: 20060124, end: 20060127
  2. BENICAR [Concomitant]

REACTIONS (2)
  - RENAL FAILURE ACUTE [None]
  - URINARY RETENTION [None]
